FAERS Safety Report 9476862 (Version 2)
Quarter: 2013Q3

REPORT INFORMATION
  Report Type: Spontaneous
  Country: GB (occurrence: GB)
  Receive Date: 20130826
  Receipt Date: 20130826
  Transmission Date: 20140515
  Serious: Yes (Other)
  Sender: FDA-Public Use
  Company Number: GB-TEVA-157400ISR

PATIENT
  Age: 74 Year
  Sex: Male

DRUGS (3)
  1. TRIMETHOPRIM [Suspect]
     Indication: URINARY TRACT INFECTION
     Dosage: 400 MILLIGRAM DAILY;
     Dates: start: 20070301, end: 20070303
  2. METHOTREXATE [Interacting]
     Indication: RHEUMATOID ARTHRITIS
     Dosage: 1.4286 MILLIGRAM DAILY; 1X1 WEEKLY, THEN 10 MG, THEN 12.5 MGLIST NUMBER AND LOT NUMBER UNKNOWN
     Route: 048
     Dates: start: 20070303
  3. METHOTREXATE [Interacting]
     Route: 048
     Dates: start: 20070224

REACTIONS (4)
  - Drug interaction [Recovered/Resolved]
  - Drug level increased [Recovered/Resolved]
  - Urinary tract infection [Recovered/Resolved]
  - Medication error [Recovered/Resolved]
